FAERS Safety Report 12453547 (Version 1)
Quarter: 2016Q2

REPORT INFORMATION
  Report Type: Spontaneous
  Country: FR (occurrence: FR)
  Receive Date: 20160609
  Receipt Date: 20160609
  Transmission Date: 20160815
  Serious: Yes (Other)
  Sender: FDA-Public Use
  Company Number: PHHY2016FR077192

PATIENT
  Age: 62 Year
  Sex: Male

DRUGS (1)
  1. TEGRETOL LP [Suspect]
     Active Substance: CARBAMAZEPINE
     Indication: EPILEPSY
     Dosage: 2 DF (400 MG), BID (TWO TABLETS IN THE MORNING AND TWO TABLETS IN THE EVENING DAILY)
     Route: 048

REACTIONS (2)
  - Dysphagia [Not Recovered/Not Resolved]
  - Neoplasm malignant [Not Recovered/Not Resolved]
